FAERS Safety Report 9119344 (Version 1)
Quarter: 2013Q1

REPORT INFORMATION
  Report Type: Spontaneous
  Country: US (occurrence: None)
  Receive Date: 20130221
  Receipt Date: 20130221
  Transmission Date: 20140127
  Serious: Yes (Hospitalization)
  Sender: FDA-Public Use
  Company Number: None

PATIENT
  Age: 12 Year
  Sex: Female
  Weight: 39.01 kg

DRUGS (2)
  1. SMZ/TMP DS 800-160 TABS INTERPHARM [Suspect]
     Indication: URINARY TRACT INFECTION
     Dates: start: 20130211, end: 20130212
  2. SMZ/TMP DS 800-160 TABS INTERPHARM [Suspect]
     Indication: EAR INFECTION
     Dates: start: 20130211, end: 20130212

REACTIONS (7)
  - Vulvovaginal pruritus [None]
  - Rash erythematous [None]
  - Burning sensation [None]
  - Vaginal mucosal blistering [None]
  - Glossodynia [None]
  - Lip pain [None]
  - Hypersensitivity [None]
